FAERS Safety Report 6304873-7 (Version None)
Quarter: 2009Q3

REPORT INFORMATION
  Report Type: 
  Country: None (occurrence: None)
  Receive Date: 20090811
  Receipt Date: 20090806
  Transmission Date: 20100115
  Serious: Yes (Death)
  Sender: FDA-Public Use
  Company Number: JP-BAYER-200912451BYL

PATIENT
  Age: 52 Year
  Sex: Female
  Weight: 40 kg

DRUGS (8)
  1. NEXAVAR [Suspect]
     Indication: HEPATIC CANCER STAGE IV
     Dosage: TOTAL DAILY DOSE: 800 MG  UNIT DOSE: 200 MG
     Route: 048
     Dates: start: 20090615, end: 20090626
  2. PROMAC [Concomitant]
     Dosage: BEFORE NEXAVAR INTAKE
     Route: 048
  3. TAKEPRON [Concomitant]
     Dosage: BEFORE NEXAVAR INTAKE
     Route: 048
  4. ALDACTONE [Concomitant]
     Dosage: BEFORE NEXAVAR INTAKE
     Route: 048
  5. LASIX [Concomitant]
     Dosage: BEFORE NEXAVAR INTAKE
     Route: 048
  6. ZYLORIC [Concomitant]
     Dosage: BEFORE NEXAVAR INTAKE
  7. MUCODYNE [Concomitant]
     Dosage: BEFORE NEXAVAR INTAKE
  8. CODEINE PHOSPHATE [Concomitant]
     Dosage: BEFORE NEXAVAR INTAKE

REACTIONS (1)
  - CARDIAC FAILURE [None]
